FAERS Safety Report 8215044-1 (Version None)
Quarter: 2012Q1

REPORT INFORMATION
  Report Type: 
  Country: None (occurrence: None)
  Receive Date: 20120229
  Receipt Date: 20110419
  Transmission Date: 20120608
  Serious: Yes (Other)
  Sender: FDA-Public Use
  Company Number: PHHY2011US36140

PATIENT

DRUGS (7)
  1. COREG [Concomitant]
  2. ASPIRIN [Concomitant]
  3. CELLCEPT [Concomitant]
  4. LIPITOR [Concomitant]
  5. NORVASC (AMLODIPINES BESILATE) [Concomitant]
  6. PREDNISONE TAB [Concomitant]
  7. NEORAL [Suspect]
     Dosage: 25 MG, BID

REACTIONS (2)
  - BRONCHITIS [None]
  - PNEUMONIA [None]
